FAERS Safety Report 15172968 (Version 1)
Quarter: 2018Q3

REPORT INFORMATION
  Report Type: Spontaneous
  Country: US (occurrence: US)
  Receive Date: 20180622
  Receipt Date: 20180622
  Transmission Date: 20181010
  Serious: Yes (Other)
  Sender: FDA-Public Use
  Company Number: None

PATIENT
  Age: 68 Year
  Sex: Female
  Weight: 74.25 kg

DRUGS (1)
  1. FLUTICASONE PROPIONATE NASAL SPRAY USP [Suspect]
     Active Substance: FLUTICASONE PROPIONATE
     Indication: HYPERSENSITIVITY
     Dosage: ?          QUANTITY:120 SPRAY(S);?
     Route: 055
     Dates: start: 20180221, end: 20180620

REACTIONS (3)
  - Haemoptysis [None]
  - Product use issue [None]
  - Epistaxis [None]

NARRATIVE: CASE EVENT DATE: 20180301
